FAERS Safety Report 20978705 (Version 2)
Quarter: 2022Q2

REPORT INFORMATION
  Report Type: Spontaneous
  Country: JP (occurrence: JP)
  Receive Date: 20220618
  Receipt Date: 20220629
  Transmission Date: 20220721
  Serious: No
  Sender: FDA-Public Use
  Company Number: JP-Eisai-202203289_LEN-RCC_P_1

PATIENT
  Age: 68 Year

DRUGS (2)
  1. LENVIMA [Suspect]
     Active Substance: LENVATINIB
     Indication: Renal cell carcinoma
     Route: 048
     Dates: start: 202204
  2. KEYTRUDA [Suspect]
     Active Substance: PEMBROLIZUMAB
     Indication: Renal cell carcinoma
     Route: 041
     Dates: start: 202204

REACTIONS (2)
  - Hypothyroidism [Unknown]
  - Liver disorder [Unknown]

NARRATIVE: CASE EVENT DATE: 20220101
